FAERS Safety Report 7826992-6 (Version None)
Quarter: 2011Q4

REPORT INFORMATION
  Report Type: 
  Country: None (occurrence: None)
  Receive Date: 20111018
  Receipt Date: 20111003
  Transmission Date: 20120403
  Serious: Yes (Hospitalization)
  Sender: FDA-Public Use
  Company Number: CIP11002541

PATIENT
  Sex: Female

DRUGS (2)
  1. ACTONEL [Suspect]
     Dosage: ORAL
     Route: 048
  2. ALL OTHER THERAPEUTIC PRODUCTS [Concomitant]

REACTIONS (8)
  - INTESTINAL HAEMORRHAGE [None]
  - URINARY TRACT INFECTION [None]
  - RASH MACULAR [None]
  - HAEMORRHAGE [None]
  - PROTHROMBIN LEVEL ABNORMAL [None]
  - GASTROINTESTINAL NEOPLASM [None]
  - THROMBOSIS [None]
  - RASH GENERALISED [None]
